FAERS Safety Report 10080345 (Version 3)
Quarter: 2014Q2

REPORT INFORMATION
  Report Type: Report from Study
  Country: BE (occurrence: BE)
  Receive Date: 20140415
  Receipt Date: 20140524
  Transmission Date: 20141212
  Serious: Yes (Hospitalization, Other)
  Sender: FDA-Public Use
  Company Number: PHHO2011BE021837

PATIENT
  Age: 64 Year
  Sex: Female
  Weight: 86.5 kg

DRUGS (21)
  1. SOM230 [Suspect]
     Indication: CUSHING^S SYNDROME
     Dosage: 1800 UG
     Dates: start: 20111003, end: 20111206
  2. SOM230 [Suspect]
     Indication: OFF LABEL USE
     Dosage: 600 UG, BID
     Dates: start: 20131227, end: 20140325
  3. BELSAR [Concomitant]
  4. GLUCOPHAGE [Concomitant]
  5. CORDARONE [Concomitant]
     Dosage: 200 MG, QD 5/7 D
  6. LOSARTAN [Concomitant]
     Dosage: 500 MG, QD
  7. BUMETANIDE [Concomitant]
     Dosage: 1.5 DF, QD
  8. ADDITIVA CALCIUM [Concomitant]
     Dosage: 1.25 G, QD
  9. ASAFLOW [Concomitant]
     Dosage: 80 MG, QD
  10. L-THYROXINE [Concomitant]
     Indication: HYPOTHYROIDISM
     Dosage: 150 UG, QD
  11. MOXONIDINE [Concomitant]
     Dosage: 0.4 MG, QD
  12. PANTOMED//PANTOPRAZOLE SODIUM SESQUIHYDRATE [Concomitant]
     Dosage: 40 MG, QD
  13. REDOMEX [Concomitant]
     Dosage: 25 MG, QD
  14. TENORMIN [Concomitant]
     Dosage: 4 DF, PER DAY
  15. ZANIDIP [Concomitant]
     Dosage: 10 MG, QD
  16. DUROGESIC [Concomitant]
     Dosage: 100 UG, Q3D
  17. ENOXAPARIN [Concomitant]
     Dosage: 40 MG, QD
     Route: 058
  18. ULTRA K [Concomitant]
     Dosage: 10 ML, TID
  19. METFORMIN [Concomitant]
     Dosage: 500 MG, QD
  20. TIORFIX [Concomitant]
     Dosage: 100 MG, TID
  21. ERCEFLORA [Concomitant]

REACTIONS (10)
  - Pituitary tumour recurrent [Unknown]
  - Hyperadrenocorticism [Unknown]
  - Hepatic steatosis [Unknown]
  - Hepatocellular injury [Recovered/Resolved]
  - Hepatotoxicity [Recovered/Resolved]
  - Hyperglycaemia [Recovered/Resolved]
  - Renal failure [Recovered/Resolved]
  - Alanine aminotransferase increased [Unknown]
  - Gamma-glutamyltransferase increased [Unknown]
  - Aspartate aminotransferase increased [Unknown]
